FAERS Safety Report 19408875 (Version 2)
Quarter: 2021Q4

REPORT INFORMATION
  Report Type: Report from Study
  Country: US (occurrence: US)
  Receive Date: 20210613
  Receipt Date: 20211026
  Transmission Date: 20220303
  Serious: Yes (Hospitalization)
  Sender: FDA-Public Use
  Company Number: NVSC2021US104543

PATIENT
  Age: 85 Year
  Sex: Male

DRUGS (23)
  1. RUXOLITINIB [Suspect]
     Active Substance: RUXOLITINIB
     Indication: Plasma cell myeloma
     Dosage: 15 MG, BID
     Route: 048
     Dates: start: 20210315, end: 20210424
  2. METHYLPREDNISOLONE ACETATE [Suspect]
     Active Substance: METHYLPREDNISOLONE ACETATE
     Indication: Plasma cell myeloma
     Dosage: 40 MG, QOD
     Route: 048
     Dates: start: 20210319, end: 20210424
  3. VALACYCLOVIR HYDROCHLORIDE [Concomitant]
     Active Substance: VALACYCLOVIR HYDROCHLORIDE
     Indication: Antiviral treatment
     Dosage: 500 MG, QD
     Route: 048
     Dates: start: 20191106, end: 20210424
  4. VALACYCLOVIR HYDROCHLORIDE [Concomitant]
     Active Substance: VALACYCLOVIR HYDROCHLORIDE
     Indication: Herpes simplex
     Dosage: 1000 MG, BID
     Route: 048
  5. LEVOTHYROXINE [Concomitant]
     Active Substance: LEVOTHYROXINE
     Indication: Hypothyroidism
     Dosage: UNK
     Route: 065
  6. ATROVENT [Concomitant]
     Active Substance: IPRATROPIUM BROMIDE
     Indication: Rhinitis
     Dosage: 21 MCG (0.03%) NASAL SPRAY 2 SPRAYS 2 TIMES DAILY AS NEEDED
     Route: 045
  7. MIRALAX [Concomitant]
     Active Substance: POLYETHYLENE GLYCOL 3350
     Indication: Diarrhoea
     Dosage: 17 G, QD PACKET MIX IN 4 OZ OF LIQUID
     Route: 048
  8. SENNA [Concomitant]
     Active Substance: SENNA LEAF\SENNOSIDES\SENNOSIDES A AND B
     Indication: Bowel movement irregularity
     Dosage: UNK
     Route: 065
  9. CARDURA [Concomitant]
     Active Substance: DOXAZOSIN MESYLATE
     Indication: Benign prostatic hyperplasia
     Dosage: 2 MG, QD
     Route: 065
  10. TAMSULOSIN [Concomitant]
     Active Substance: TAMSULOSIN
     Indication: Benign prostatic hyperplasia
     Dosage: 0.4 MG, QD
     Route: 048
  11. NEURONTIN [Concomitant]
     Active Substance: GABAPENTIN
     Indication: Product used for unknown indication
     Dosage: 600 MG, TID
     Route: 065
  12. ELIQUIS [Concomitant]
     Active Substance: APIXABAN
     Indication: Product used for unknown indication
     Dosage: 5 MG, BID
     Route: 048
  13. FLORINEF ACETATE [Concomitant]
     Active Substance: FLUDROCORTISONE ACETATE
     Indication: Product used for unknown indication
     Dosage: 0.2 MG, QD
     Route: 065
  14. FOLIC ACID [Concomitant]
     Active Substance: FOLIC ACID
     Indication: Product used for unknown indication
     Dosage: 1 MG, QD
     Route: 065
  15. LIDODERM [Concomitant]
     Active Substance: LIDOCAINE
     Indication: Product used for unknown indication
     Dosage: 5 % 1 PATCH EVERY 24 HOURS
     Route: 065
  16. CYTOMEL [Concomitant]
     Active Substance: LIOTHYRONINE SODIUM
     Indication: Product used for unknown indication
     Dosage: 5 UG, QD
     Route: 048
  17. PROAMATINE [Concomitant]
     Active Substance: MIDODRINE HYDROCHLORIDE
     Indication: Product used for unknown indication
     Dosage: 10 MG, TID
     Route: 048
  18. BETAPACE [Concomitant]
     Active Substance: SOTALOL HYDROCHLORIDE
     Indication: Arrhythmia
     Dosage: 160 MG, BID
     Route: 048
  19. EMPLICITI [Concomitant]
     Active Substance: ELOTUZUMAB
     Indication: Product used for unknown indication
     Dosage: INJECT 1 DOSE EVERY 30 DAYS
     Route: 042
  20. GAMMAGARD S/D [Concomitant]
     Active Substance: HUMAN IMMUNOGLOBULIN G
     Indication: Product used for unknown indication
     Dosage: 1 DOSE EVERY 30 DAYS
     Route: 042
  21. METHYLCELLULOSES [Concomitant]
     Active Substance: METHYLCELLULOSES
     Indication: Constipation
     Dosage: 500 MG DAILY AS NEEDED
     Route: 048
  22. MUPIROCIN [Concomitant]
     Active Substance: MUPIROCIN
     Indication: Product used for unknown indication
     Dosage: 2 % APPLY TWO TIMES DAILY
     Route: 061
  23. ZOMETA [Concomitant]
     Active Substance: ZOLEDRONIC ACID
     Indication: Product used for unknown indication
     Dosage: 1 DOSE INTO THE VEIN 3 MONTHS
     Route: 065

REACTIONS (1)
  - Pneumonia aspiration [Recovering/Resolving]

NARRATIVE: CASE EVENT DATE: 20210424
